FAERS Safety Report 6617978 (Version 2)
Quarter: 2013Q1

REPORT INFORMATION
  Report Type: Spontaneous
  Country: KR (occurrence: None)
  Receive Date: 20080407
  Receipt Date: 20130115
  Transmission Date: 20140127
  Serious: Yes (Hospitalization)
  Sender: FDA-Public Use
  Company Number: 2008AP000754

PATIENT
  Age: 59 Year
  Sex: Female

DRUGS (4)
  1. CARBAMAZEPINE [Suspect]
     Indication: NECK PAIN
  2. GABAPENTIN (GABAPENTIN) [Concomitant]
  3. MELOXICAM [Concomitant]
  4. CIMETIDINE [Concomitant]

REACTIONS (6)
  - Drug reaction with eosinophilia and systemic symptoms [None]
  - Epstein-Barr virus infection [None]
  - Lymphadenopathy [None]
  - Proteinuria [None]
  - Gallbladder disorder [None]
  - Drug-induced liver injury [None]
